FAERS Safety Report 5270290-4 (Version None)
Quarter: 2007Q1

REPORT INFORMATION
  Report Type: 
  Country: None (occurrence: None)
  Receive Date: 20070320
  Receipt Date: 20070308
  Transmission Date: 20070707
  Serious: Yes (Death, Other)
  Sender: FDA-Public Use
  Company Number: US-PFIZER INC-2004058042

PATIENT
  Sex: Male
  Weight: 85.3 kg

DRUGS (9)
  1. NEURONTIN [Suspect]
     Indication: CARPAL TUNNEL SYNDROME
     Dosage: DAILY DOSE:900MG
     Route: 048
     Dates: start: 20030201, end: 20030701
  2. NEURONTIN [Suspect]
     Indication: NEUROPATHY PERIPHERAL
  3. NEURONTIN [Suspect]
     Indication: PAIN
  4. NEURONTIN [Suspect]
     Indication: ULNAR NERVE INJURY
  5. BEXTRA [Concomitant]
     Route: 048
     Dates: start: 20030619, end: 20030730
  6. MEDROL [Concomitant]
     Route: 065
  7. ULTRACET [Concomitant]
     Route: 065
  8. CYCLOBENZAPRINE HCL [Concomitant]
     Route: 065
  9. HYDROCODONE [Concomitant]

REACTIONS (9)
  - ANXIETY [None]
  - CERVICOBRACHIAL SYNDROME [None]
  - COMPLETED SUICIDE [None]
  - DEPRESSION [None]
  - GUN SHOT WOUND [None]
  - INJURY [None]
  - PAIN [None]
  - STRESS [None]
  - SUICIDAL IDEATION [None]
